FAERS Safety Report 12641533 (Version 11)
Quarter: 2018Q4

REPORT INFORMATION
  Report Type: Spontaneous
  Country: US (occurrence: US)
  Receive Date: 20160810
  Receipt Date: 20181228
  Transmission Date: 20190204
  Serious: No
  Sender: FDA-Public Use
  Company Number: US-PFIZER INC-2016216550

PATIENT
  Age: 62 Year
  Sex: Male
  Weight: 69 kg

DRUGS (22)
  1. BEE POLLEN [Concomitant]
     Active Substance: BEE POLLEN
     Indication: ASTHENIA
     Dosage: UNK, DAILY (1/2 TEASPOON, DAILY)
     Route: 048
  2. ZETIA [Concomitant]
     Active Substance: EZETIMIBE
     Indication: CORONARY ARTERY DISEASE
     Dosage: 10 MG, 1X/DAY
     Route: 048
  3. LEVOTHYROXINE. [Concomitant]
     Active Substance: LEVOTHYROXINE
     Indication: THYROID DISORDER
     Dosage: 100 UG, 1X/DAY
     Route: 048
  4. ISOSORBIDE. [Concomitant]
     Active Substance: ISOSORBIDE
     Dosage: 30 MG, 1X/DAY
  5. NITROGLYCERIN. [Concomitant]
     Active Substance: NITROGLYCERIN
     Indication: CORONARY ARTERY DISEASE
     Dosage: 0.4 MG, AS NEEDED
     Route: 048
  6. BOSULIF [Suspect]
     Active Substance: BOSUTINIB MONOHYDRATE
     Dosage: 400 MG, 1X/DAY
     Route: 048
  7. ASPIRIN. [Concomitant]
     Active Substance: ASPIRIN
     Indication: CORONARY ARTERY DISEASE
     Dosage: 325 MG, 1X/DAY
     Route: 048
  8. CRESTOR [Concomitant]
     Active Substance: ROSUVASTATIN CALCIUM
     Indication: CORONARY ARTERY DISEASE
     Dosage: 10 MG, 1X/DAY
     Route: 048
  9. LYRICA [Concomitant]
     Active Substance: PREGABALIN
     Indication: NERVE INJURY
     Dosage: 150 MG, 2X/DAY
     Route: 048
  10. BOSULIF [Suspect]
     Active Substance: BOSUTINIB MONOHYDRATE
     Dosage: 500 MG, 1X/DAY (WITH FOOD)
     Route: 048
     Dates: start: 2016
  11. SODIUM FLUORIDE. [Concomitant]
     Active Substance: SODIUM FLUORIDE
     Indication: TOOTH DISORDER
     Dosage: 1.1 %, 1X/DAY  (APPLIED TO TEETH)
  12. SILDENAFIL. [Concomitant]
     Active Substance: SILDENAFIL
     Indication: SEXUAL DYSFUNCTION
     Dosage: 100 MG, AS NEEDED
     Route: 048
  13. ZANTAC [Concomitant]
     Active Substance: RANITIDINE HYDROCHLORIDE
     Indication: GASTROOESOPHAGEAL REFLUX DISEASE
     Dosage: 150 MG, 1X/DAY
     Route: 048
  14. PSYLLIUM [Concomitant]
     Active Substance: PLANTAGO SEED
     Indication: BLOOD CHOLESTEROL INCREASED
     Dosage: UNK, 2X/DAY (1 TEASPOON, 2X/DAY)
     Route: 048
  15. EZETIMIBE. [Concomitant]
     Active Substance: EZETIMIBE
     Dosage: 10 MG, 1X/DAY
  16. ROSUVASTATIN. [Concomitant]
     Active Substance: ROSUVASTATIN
     Indication: BLOOD CHOLESTEROL INCREASED
     Dosage: UNK
  17. BOSULIF [Suspect]
     Active Substance: BOSUTINIB MONOHYDRATE
     Indication: CHRONIC MYELOID LEUKAEMIA
     Dosage: 300 MG, 1X/DAY
     Route: 048
     Dates: start: 20160416
  18. BOSULIF [Suspect]
     Active Substance: BOSUTINIB MONOHYDRATE
     Dosage: 500 MG, DAILY (SHOULD BE TAKEN WITH FOOD)
     Route: 048
     Dates: start: 2016
  19. BOSULIF [Suspect]
     Active Substance: BOSUTINIB MONOHYDRATE
     Dosage: 400 MG, DAILY(WHICH WOULD BE 4, 100 MG TABLETS DAILY TO BE TAKEN EVERY DAY ABOUT SAME TIMEWITH FOOD
     Route: 048
     Dates: start: 201605
  20. LYRICA [Concomitant]
     Active Substance: PREGABALIN
     Indication: NEURALGIA
  21. PANTOPRAZOLE [Concomitant]
     Active Substance: PANTOPRAZOLE
     Dosage: UNK
  22. PLAVIX [Concomitant]
     Active Substance: CLOPIDOGREL BISULFATE
     Indication: CORONARY ARTERY DISEASE
     Dosage: 75 MG, 1X/DAY
     Route: 048

REACTIONS (7)
  - Red blood cell count abnormal [Recovering/Resolving]
  - Dyspepsia [Not Recovered/Not Resolved]
  - Memory impairment [Unknown]
  - Nausea [Recovered/Resolved]
  - Fatigue [Recovering/Resolving]
  - Rotator cuff syndrome [Unknown]
  - Anaemia [Unknown]

NARRATIVE: CASE EVENT DATE: 20161124
